FAERS Safety Report 10723087 (Version 3)
Quarter: 2015Q1

REPORT INFORMATION
  Report Type: Spontaneous
  Country: EG (occurrence: EG)
  Receive Date: 20150120
  Receipt Date: 20150225
  Transmission Date: 20150721
  Serious: Yes (Hospitalization)
  Sender: FDA-Public Use
  Company Number: EG-ROCHE-1523411

PATIENT
  Age: 39 Year
  Sex: Male
  Weight: 80 kg

DRUGS (7)
  1. XOLAIR [Suspect]
     Active Substance: OMALIZUMAB
     Indication: CHRONIC SPONTANEOUS URTICARIA
     Dosage: 2 DF FOR 3 CONSECUTIVE WEEKS
     Route: 058
  2. XOLAIR [Suspect]
     Active Substance: OMALIZUMAB
     Indication: ASTHMA
     Dosage: 2 DF
     Route: 058
     Dates: start: 20141215
  3. XOLAIR [Suspect]
     Active Substance: OMALIZUMAB
     Dosage: 2 DF
     Route: 065
  4. DIAMICRON [Concomitant]
     Active Substance: GLICLAZIDE
  5. XOLAIR [Suspect]
     Active Substance: OMALIZUMAB
     Dosage: 2 DF
     Route: 065
     Dates: start: 20150116, end: 20150116
  6. FORADIL [Concomitant]
     Active Substance: FORMOTEROL FUMARATE
  7. MIFLONIDE [Concomitant]
     Active Substance: BUDESONIDE

REACTIONS (3)
  - Inappropriate schedule of drug administration [Unknown]
  - Hepatic enzyme increased [Recovered/Resolved]
  - Hyperglycaemia [Recovered/Resolved]

NARRATIVE: CASE EVENT DATE: 20150107
